FAERS Safety Report 11553495 (Version 1)
Quarter: 2015Q3

REPORT INFORMATION
  Report Type: Spontaneous
  Country: FR (occurrence: FR)
  Receive Date: 20150925
  Receipt Date: 20150925
  Transmission Date: 20151125
  Serious: Yes (Other)
  Sender: FDA-Public Use
  Company Number: FR-PFIZER INC-2015317061

PATIENT
  Age: 25 Year
  Sex: Female

DRUGS (1)
  1. ADEPAL [Suspect]
     Active Substance: ETHINYL ESTRADIOL\LEVONORGESTREL
     Indication: CONTRACEPTION
     Dosage: 30-40 UG ETHINYL-STRADIOL, 0.15-0.20 MG LEVONORGESTREL

REACTIONS (1)
  - Autoimmune dermatitis [Recovering/Resolving]
